FAERS Safety Report 8922826 (Version 4)
Quarter: 2013Q4

REPORT INFORMATION
  Report Type: Spontaneous
  Country: US (occurrence: US)
  Receive Date: 20121125
  Receipt Date: 20131025
  Transmission Date: 20140711
  Serious: Yes (Hospitalization)
  Sender: FDA-Public Use
  Company Number: US-BAYER-2012-117374

PATIENT
  Age: 30 Year
  Sex: Female
  Weight: 100 kg

DRUGS (2)
  1. MIRENA [Suspect]
     Indication: CONTRACEPTION
     Dosage: 20 ?G/D, CONT
     Route: 015
     Dates: start: 20060209, end: 20110725
  2. METHYLDOPA [Concomitant]
     Dosage: 500 MG, UNK
     Route: 048

REACTIONS (14)
  - Uterine perforation [None]
  - Abdominal pain [None]
  - Device difficult to use [None]
  - Medical device pain [None]
  - Polymenorrhoea [None]
  - Menstruation irregular [Not Recovered/Not Resolved]
  - Procedural pain [Not Recovered/Not Resolved]
  - Injury [None]
  - Scar [None]
  - Pain [None]
  - Emotional distress [None]
  - Device misuse [None]
  - Fear [None]
  - Depression [None]
